FAERS Safety Report 8942131 (Version 1)
Quarter: 2012Q4

REPORT INFORMATION
  Report Type: Report from Study
  Country: KR (occurrence: KR)
  Receive Date: 20121130
  Receipt Date: 20121130
  Transmission Date: 20130627
  Serious: Yes (Other)
  Sender: FDA-Public Use
  Company Number: KR-GLAXOSMITHKLINE-B0848400A

PATIENT
  Age: 52 Year
  Sex: Male

DRUGS (5)
  1. ADEFOVIR DIPIVOXIL [Suspect]
     Indication: HEPATITIS B
     Route: 065
  2. ADEFOVIR DIPIVOXIL [Suspect]
     Route: 065
  3. LAMIVUDINE-HBV [Suspect]
     Indication: HEPATITIS B
     Route: 065
  4. LAMIVUDINE-HBV [Suspect]
     Route: 065
  5. ENTECAVIR [Suspect]
     Indication: HEPATITIS B
     Route: 065

REACTIONS (2)
  - Viral load increased [Unknown]
  - Drug ineffective [Unknown]
